FAERS Safety Report 14996795 (Version 1)
Quarter: 2018Q2

REPORT INFORMATION
  Report Type: Report from Study
  Country: GB (occurrence: GB)
  Receive Date: 20180611
  Receipt Date: 20180611
  Transmission Date: 20180711
  Serious: Yes (Death, Hospitalization, Other)
  Sender: FDA-Public Use
  Company Number: GB-JAZZ-2018-GB-009217

PATIENT
  Age: 5 Month
  Sex: Male

DRUGS (1)
  1. DEFITELIO [Suspect]
     Active Substance: DEFIBROTIDE SODIUM
     Indication: PRODUCT USED FOR UNKNOWN INDICATION
     Dosage: 25 MG/KG, QD

REACTIONS (8)
  - Blood creatinine increased [Unknown]
  - Ascites [Unknown]
  - Retrograde portal vein flow [Unknown]
  - Idiopathic pneumonia syndrome [Fatal]
  - Multiple organ dysfunction syndrome [Fatal]
  - Enterovirus infection [Unknown]
  - Rhinovirus infection [Unknown]
  - Hyperbilirubinaemia [Unknown]

NARRATIVE: CASE EVENT DATE: 20171120
